FAERS Safety Report 4723894-9 (Version None)
Quarter: 2005Q3

REPORT INFORMATION
  Report Type: 
  Country: None (occurrence: None)
  Receive Date: 20050722
  Receipt Date: 20050711
  Transmission Date: 20060218
  Serious: Yes (Life-Threatening, Hospitalization, Disabling, Other)
  Sender: FDA-Public Use
  Company Number: 2005079631

PATIENT
  Sex: Female
  Weight: 52.6173 kg

DRUGS (13)
  1. CELEBREX [Suspect]
     Indication: ARTHRITIS
     Dosage: 200 MG (200 MG, 1 IN 1 D), ORAL
     Route: 048
     Dates: end: 20041216
  2. CALCIUM                       (CALCIUM) [Concomitant]
  3. ASPIRIN [Concomitant]
  4. VITAMIN E [Concomitant]
  5. VITAMIN C             (VITAMIN C) [Concomitant]
  6. MULTIVITAMIN [Concomitant]
  7. XALATAN [Concomitant]
  8. LISINOPRIL [Concomitant]
  9. ATENOLOL [Concomitant]
  10. DIGOXIN [Concomitant]
  11. FOSAMAX [Concomitant]
  12. AGRYLIN [Concomitant]
  13. ZANTAC [Concomitant]

REACTIONS (8)
  - CAROTID ARTERY DISEASE [None]
  - CEREBRAL INFARCTION [None]
  - CEREBROVASCULAR ACCIDENT [None]
  - DYSARTHRIA [None]
  - HYPERTENSION [None]
  - HYPOAESTHESIA [None]
  - MOVEMENT DISORDER [None]
  - NERVOUS SYSTEM DISORDER [None]
